FAERS Safety Report 17655392 (Version 1)
Quarter: 2020Q2

REPORT INFORMATION
  Report Type: Spontaneous
  Country: ES (occurrence: ES)
  Receive Date: 20200410
  Receipt Date: 20200410
  Transmission Date: 20200713
  Serious: Yes (Other)
  Sender: FDA-Public Use
  Company Number: ES-TEVA-2020-ES-1221530

PATIENT
  Age: 70 Year
  Sex: Female
  Weight: 60 kg

DRUGS (3)
  1. PARACETAMOL CINFA 1 G COMPRIMIDOS EFG , 20 COMPRIMIDOS [Concomitant]
     Indication: CHEST PAIN
  2. ALPRAZOLAM NORMON 0,25 MG COMPRIMIDOS EFG, 30 COMPRIMIDOS [Concomitant]
     Indication: CHEST PAIN
     Dates: start: 20200312
  3. NAPROXENO (2002A) [Suspect]
     Active Substance: NAPROXEN
     Indication: BACK PAIN
     Dosage: 1 C/12 H, 1 DOSAGE FORMS
     Route: 048
     Dates: start: 20200329, end: 20200329

REACTIONS (2)
  - Pruritus [Recovered/Resolved]
  - Presyncope [Recovering/Resolving]

NARRATIVE: CASE EVENT DATE: 20200329
